FAERS Safety Report 24306745 (Version 2)
Quarter: 2024Q4

REPORT INFORMATION
  Report Type: Spontaneous
  Country: TH (occurrence: TH)
  Receive Date: 20240911
  Receipt Date: 20241210
  Transmission Date: 20250115
  Serious: Yes (Other)
  Sender: NOVARTIS
  Company Number: TH-002147023-NVSC2024TH176789

PATIENT
  Age: 50 Year
  Sex: Female

DRUGS (4)
  1. RIBOCICLIB [Suspect]
     Active Substance: RIBOCICLIB
     Indication: Breast cancer
     Dosage: 3 DOSAGE FORM, QD
     Route: 065
     Dates: start: 20240124
  2. LETROZOLE [Suspect]
     Active Substance: LETROZOLE
     Indication: Breast cancer
     Dosage: UNK
     Route: 065
  3. ANASTROZOLE [Concomitant]
     Active Substance: ANASTROZOLE
     Indication: Breast cancer
     Dosage: UNK
     Route: 065
     Dates: start: 20240124
  4. ZOMETA [Concomitant]
     Active Substance: ZOLEDRONIC ACID
     Indication: Metastases to bone
     Dosage: UNK
     Route: 065

REACTIONS (14)
  - Chronic kidney disease [Unknown]
  - White blood cell count decreased [Unknown]
  - Red blood cell count decreased [Unknown]
  - Haemoglobin decreased [Unknown]
  - Haematocrit decreased [Unknown]
  - Mean cell volume increased [Unknown]
  - Mean cell haemoglobin increased [Unknown]
  - Mean cell haemoglobin concentration decreased [Unknown]
  - Red cell distribution width increased [Unknown]
  - Monocyte count increased [Unknown]
  - Globulins increased [Unknown]
  - Blood alkaline phosphatase increased [Unknown]
  - Blood cholesterol increased [Unknown]
  - Therapy partial responder [Unknown]
